FAERS Safety Report 8480298-3 (Version None)
Quarter: 2012Q2

REPORT INFORMATION
  Report Type: 
  Country: None (occurrence: None)
  Receive Date: 20120629
  Receipt Date: 20120618
  Transmission Date: 20120825
  Serious: No
  Sender: FDA-Public Use
  Company Number: US-ASTRAZENECA-2012SE41269

PATIENT
  Age: 51 Year
  Sex: Female

DRUGS (1)
  1. ATACAND HCT [Suspect]
     Route: 048

REACTIONS (6)
  - LIP DRY [None]
  - DIZZINESS [None]
  - BLOOD PRESSURE DECREASED [None]
  - DEHYDRATION [None]
  - TONGUE DRY [None]
  - ADVERSE DRUG REACTION [None]
